FAERS Safety Report 4307517-9 (Version None)
Quarter: 2004Q1

REPORT INFORMATION
  Report Type: 
  Country: None (occurrence: None)
  Receive Date: 20040226
  Receipt Date: 20040217
  Transmission Date: 20041129
  Serious: Yes (Other)
  Sender: FDA-Public Use
  Company Number: 2004200057GB

PATIENT
  Age: 73 Year
  Sex: 0

DRUGS (6)
  1. LONITEN [Suspect]
     Indication: HYPERTENSION
     Dosage: 200 UNK, BID, ORAL
     Route: 048
     Dates: start: 20031023, end: 20040113
  2. SIMVASTATIN [Suspect]
     Indication: HYPERCHOLESTEROLAEMIA
     Dosage: 20 MG, DAILY, ORAL
     Route: 048
     Dates: start: 19960101, end: 20040128
  3. CO-AMILOFRUSE [Concomitant]
  4. CO-PROXAMOL (DEXTROPROPOXYPHENE HYDROCHLORIDE) [Concomitant]
  5. QUININE (QUININE) [Concomitant]
  6. FERROUS SULFATE EXSICCATED (FERROUS SULFATE EXSICCATED) [Concomitant]

REACTIONS (1)
  - NEUROPATHY PERIPHERAL [None]
